FAERS Safety Report 15476054 (Version 1)
Quarter: 2018Q4

REPORT INFORMATION
  Report Type: Report from Study
  Country: US (occurrence: US)
  Receive Date: 20181009
  Receipt Date: 20181009
  Transmission Date: 20190205
  Serious: No
  Sender: FDA-Public Use
  Company Number: PHEH2018US042578

PATIENT
  Age: 39 Year
  Sex: Female
  Weight: 104.31 kg

DRUGS (1)
  1. GLATOPA [Suspect]
     Active Substance: GLATIRAMER ACETATE
     Indication: PSORIATIC ARTHROPATHY
     Dosage: 20 MG, QD (ROTATES SITES)
     Route: 058
     Dates: start: 20180523

REACTIONS (3)
  - Confusional state [Recovered/Resolved]
  - Incorrect dose administered [Recovered/Resolved]
  - Wrong technique in device usage process [Recovered/Resolved]

NARRATIVE: CASE EVENT DATE: 20180529
